FAERS Safety Report 9649789 (Version 1)
Quarter: 2013Q4

REPORT INFORMATION
  Report Type: Spontaneous
  Country: FI (occurrence: FI)
  Receive Date: 20131028
  Receipt Date: 20131028
  Transmission Date: 20140711
  Serious: Yes (Other)
  Sender: FDA-Public Use
  Company Number: FI-ROCHE-1292763

PATIENT
  Age: 53 Year
  Sex: Female

DRUGS (11)
  1. BONDRONAT [Suspect]
     Indication: METASTASES TO BONE
     Dosage: 50 MG EVERY SECOND DAY
     Route: 048
     Dates: start: 20100617
  2. AVASTIN [Suspect]
     Indication: BREAST CANCER
     Route: 042
     Dates: start: 20100203, end: 20111005
  3. DOCETAXEL [Suspect]
     Indication: BREAST CANCER
     Route: 042
     Dates: start: 20100203, end: 2010
  4. FRAGMIN [Concomitant]
     Dosage: 5000 IU X 2
     Route: 058
  5. FEMAR [Concomitant]
     Indication: BREAST CANCER
     Route: 048
     Dates: start: 20100617
  6. SELOKEN ZOC [Concomitant]
     Indication: HYPERTENSION
     Dosage: 47.5 MG PLUS 95 MG
     Route: 048
  7. ENALAPRIL [Concomitant]
     Indication: HYPERTENSION
     Route: 048
  8. FUCIDIN 2% CREAM [Concomitant]
     Route: 065
     Dates: start: 20100519
  9. LODINE [Concomitant]
     Route: 065
     Dates: start: 20100714
  10. KEFEXIN [Concomitant]
     Route: 065
     Dates: start: 20100421, end: 20100425
  11. DALACINE [Concomitant]
     Route: 065
     Dates: start: 20100504, end: 20100514

REACTIONS (5)
  - Renal failure [Not Recovered/Not Resolved]
  - Nephrotic syndrome [Not Recovered/Not Resolved]
  - Nephrosclerosis [Not Recovered/Not Resolved]
  - Hypertension [Unknown]
  - Proteinuria [Not Recovered/Not Resolved]
